FAERS Safety Report 12832405 (Version 1)
Quarter: 2016Q4

REPORT INFORMATION
  Report Type: Spontaneous
  Country: US (occurrence: US)
  Receive Date: 20161010
  Receipt Date: 20161010
  Transmission Date: 20170207
  Serious: No
  Sender: FDA-Public Use
  Company Number: US-JAZZ-2016-US-013180

PATIENT
  Sex: Female

DRUGS (25)
  1. XYREM [Suspect]
     Active Substance: SODIUM OXYBATE
     Dosage: 4 G, BID
     Route: 048
     Dates: start: 201506
  2. DICLOFENAC POTASSIUM. [Concomitant]
     Active Substance: DICLOFENAC POTASSIUM
  3. LATUDA [Concomitant]
     Active Substance: LURASIDONE HYDROCHLORIDE
  4. RANITIDINE. [Concomitant]
     Active Substance: RANITIDINE
  5. LEVOTHYROXINE. [Concomitant]
     Active Substance: LEVOTHYROXINE
  6. NUVIGIL [Concomitant]
     Active Substance: ARMODAFINIL
  7. XYREM [Suspect]
     Active Substance: SODIUM OXYBATE
     Indication: NARCOLEPSY
     Dosage: 2.25 G, BID
     Route: 048
     Dates: start: 201502, end: 201504
  8. XYREM [Suspect]
     Active Substance: SODIUM OXYBATE
     Indication: CATAPLEXY
     Dosage: 3 G, BID
     Route: 048
     Dates: start: 201504, end: 201506
  9. ESTROGEN [Concomitant]
     Active Substance: ESTRONE\SUS SCROFA OVARY
  10. EFFEXOR [Concomitant]
     Active Substance: VENLAFAXINE HYDROCHLORIDE
  11. LIPITOR [Concomitant]
     Active Substance: ATORVASTATIN CALCIUM
  12. RITALIN [Concomitant]
     Active Substance: METHYLPHENIDATE HYDROCHLORIDE
  13. NASONEX [Concomitant]
     Active Substance: MOMETASONE FUROATE
  14. TRILIPIX [Concomitant]
     Active Substance: FENOFIBRIC ACID
  15. FARXIGA [Concomitant]
     Active Substance: DAPAGLIFLOZIN PROPANEDIOL
  16. VESICARE [Concomitant]
     Active Substance: SOLIFENACIN SUCCINATE
  17. CLARITIN [Concomitant]
     Active Substance: LORATADINE
  18. MUCINEX [Concomitant]
     Active Substance: GUAIFENESIN
  19. PROTONIX [Concomitant]
     Active Substance: PANTOPRAZOLE SODIUM
  20. TOVIAZ [Concomitant]
     Active Substance: FESOTERODINE FUMARATE
  21. VICTOZA [Concomitant]
     Active Substance: LIRAGLUTIDE
  22. HUMALOG [Concomitant]
     Active Substance: INSULIN LISPRO
  23. XANAX [Concomitant]
     Active Substance: ALPRAZOLAM
  24. CETIRIZINE HCL [Concomitant]
     Active Substance: CETIRIZINE HYDROCHLORIDE
  25. MYRBETRIQ [Concomitant]
     Active Substance: MIRABEGRON

REACTIONS (1)
  - Ear infection [Unknown]
